FAERS Safety Report 8525348-0 (Version None)
Quarter: 2012Q3

REPORT INFORMATION
  Report Type: 
  Country: None (occurrence: None)
  Receive Date: 20120720
  Receipt Date: 20120719
  Transmission Date: 20120928
  Serious: Yes (Death, Hospitalization)
  Sender: FDA-Public Use
  Company Number: PHHO2012HU010347

PATIENT
  Sex: Female

DRUGS (5)
  1. RADIATION THERAPY [Concomitant]
  2. BISPHOSPHONATES [Concomitant]
     Dosage: UNK
     Dates: start: 20110101, end: 20111004
  3. CHEMOTHERAPEUTICS [Concomitant]
  4. LETROZOLE [Suspect]
     Indication: BREAST CANCER
     Dosage: 2.5 MG, QD
     Route: 048
     Dates: start: 20080730
  5. ENDOCRINE THERAPY [Concomitant]

REACTIONS (3)
  - BREAST CANCER METASTATIC [None]
  - CARDIAC FAILURE CONGESTIVE [None]
  - METASTASES TO LIVER [None]
